FAERS Safety Report 16043369 (Version 3)
Quarter: 2020Q1

REPORT INFORMATION
  Report Type: Spontaneous
  Country: IL (occurrence: IL)
  Receive Date: 20190306
  Receipt Date: 20200218
  Transmission Date: 20200409
  Serious: Yes (Congenital Anomaly, Other)
  Sender: FDA-Public Use
  Company Number: IL-ABBVIE-19K-082-2689323-00

PATIENT
  Sex: Female

DRUGS (1)
  1. HUMIRA [Suspect]
     Active Substance: ADALIMUMAB
     Indication: MATERNAL EXPOSURE TIMING UNSPECIFIED
     Route: 064

REACTIONS (5)
  - Stillbirth [Unknown]
  - Foetal exposure during pregnancy [Unknown]
  - Bone disorder [Unknown]
  - Tachycardia foetal [Unknown]
  - Exposure during pregnancy [Unknown]
